FAERS Safety Report 10350984 (Version 1)
Quarter: 2014Q3

REPORT INFORMATION
  Report Type: Spontaneous
  Country: NL (occurrence: NL)
  Receive Date: 20140730
  Receipt Date: 20140730
  Transmission Date: 20150326
  Serious: Yes (Hospitalization)
  Sender: FDA-Public Use
  Company Number: NL-TEVA-495960ISR

PATIENT
  Age: 48 Year
  Sex: Male
  Weight: 76 kg

DRUGS (3)
  1. IBUPROFEN TABLET 400MG [Suspect]
     Active Substance: IBUPROFEN
     Indication: HYPERTONIA
     Dosage: 800 MILLIGRAM DAILY;
     Route: 048
     Dates: start: 20040101, end: 20140529
  2. MELATONINE [Concomitant]
     Active Substance: MELATONIN
     Dosage: 2 DOSAGE FORMS DAILY;
     Route: 048
     Dates: start: 20040101
  3. AMITRIPTYLINE HYDROCHLORIDE. [Concomitant]
     Active Substance: AMITRIPTYLINE HYDROCHLORIDE
     Dosage: 2 DOSAGE FORMS DAILY;
     Route: 048
     Dates: start: 20040101

REACTIONS (1)
  - Nephrotic syndrome [Recovering/Resolving]

NARRATIVE: CASE EVENT DATE: 20140529
